FAERS Safety Report 21192931 (Version 2)
Quarter: 2023Q1

REPORT INFORMATION
  Report Type: Report from Study
  Country: CA (occurrence: CA)
  Receive Date: 20220810
  Receipt Date: 20230130
  Transmission Date: 20230417
  Serious: Yes (Other)
  Sender: FDA-Public Use
  Company Number: CA-JNJFOC-20220811754

PATIENT
  Age: 44 Year
  Sex: Female

DRUGS (2)
  1. REMICADE [Suspect]
     Active Substance: INFLIXIMAB
     Indication: Crohn^s disease
     Route: 042
     Dates: start: 20220622, end: 2022
  2. MODERNA COVID-19 VACCINE [Concomitant]
     Active Substance: ELASOMERAN
     Indication: COVID-19 prophylaxis
     Dosage: PATIENT HAD TWO MODERNA COVID-19 VACCINES
     Route: 065

REACTIONS (2)
  - Systemic lupus erythematosus [Unknown]
  - Spinal pain [Unknown]

NARRATIVE: CASE EVENT DATE: 20220101
